FAERS Safety Report 10385333 (Version 1)
Quarter: 2014Q3

REPORT INFORMATION
  Report Type: Spontaneous
  Country: US (occurrence: US)
  Receive Date: 20140814
  Receipt Date: 20140814
  Transmission Date: 20150326
  Serious: Yes (Hospitalization, Other)
  Sender: FDA-Public Use
  Company Number: US-B.I. PHARMACEUTICALS,INC./RIDGEFIELD-2014-BI-36975BP

PATIENT
  Age: 73 Year
  Sex: Male
  Weight: 83.9 kg

DRUGS (9)
  1. PRILOSEC [Concomitant]
     Active Substance: OMEPRAZOLE MAGNESIUM
     Dosage: 40 MG
     Route: 048
  2. CADUET [Concomitant]
     Active Substance: AMLODIPINE BESYLATE\ATORVASTATIN CALCIUM
     Dosage: DOSE PER APPLICATION AND DAILY DOSE: 10/40MG
     Route: 048
  3. NITROSTAT [Concomitant]
     Active Substance: NITROGLYCERIN
     Indication: CHEST PAIN
     Route: 060
  4. VICODIN [Concomitant]
     Active Substance: ACETAMINOPHEN\HYDROCODONE BITARTRATE
     Indication: PAIN
     Dosage: DOSE PER APPLICATION: 5/500MG
     Route: 048
  5. BETAPACE [Concomitant]
     Active Substance: SOTALOL HYDROCHLORIDE
     Dosage: 160 MG
     Route: 048
  6. BAYER ASPIRIN [Concomitant]
     Active Substance: ASPIRIN
     Route: 048
  7. LOVAZA [Concomitant]
     Active Substance: OMEGA-3-ACID ETHYL ESTERS
     Dosage: 4 G
     Route: 048
  8. BENICAR [Concomitant]
     Active Substance: OLMESARTAN MEDOXOMIL
     Dosage: 40 MG
     Route: 048
  9. PRADAXA [Suspect]
     Active Substance: DABIGATRAN ETEXILATE MESYLATE
     Indication: ATRIAL FIBRILLATION
     Dosage: 300 MG
     Route: 048
     Dates: start: 201104, end: 20120818

REACTIONS (7)
  - Renal haemorrhage [Recovered/Resolved]
  - Renal failure acute [Recovered/Resolved]
  - Epistaxis [Not Recovered/Not Resolved]
  - Haemorrhagic anaemia [Unknown]
  - Retroperitoneal haemorrhage [Recovered/Resolved]
  - Acute myocardial infarction [Unknown]
  - Contusion [Unknown]

NARRATIVE: CASE EVENT DATE: 201208
